FAERS Safety Report 15254543 (Version 1)
Quarter: 2018Q3

REPORT INFORMATION
  Report Type: Spontaneous
  Country: US (occurrence: US)
  Receive Date: 20180717
  Receipt Date: 20180717
  Transmission Date: 20181010
  Serious: Yes (Hospitalization)
  Sender: FDA-Public Use
  Company Number: None

PATIENT
  Age: 61 Year
  Sex: Male
  Weight: 130.73 kg

DRUGS (1)
  1. RIVAROXABAN [Suspect]
     Active Substance: RIVAROXABAN
     Dates: start: 20131113, end: 20171101

REACTIONS (2)
  - Treatment failure [None]
  - Pulmonary embolism [None]

NARRATIVE: CASE EVENT DATE: 20171101
